FAERS Safety Report 8059597-5 (Version None)
Quarter: 2012Q1

REPORT INFORMATION
  Report Type: 
  Country: None (occurrence: None)
  Receive Date: 20120119
  Receipt Date: 20120119
  Transmission Date: 20120608
  Serious: Yes (Hospitalization)
  Sender: FDA-Public Use
  Company Number: None

PATIENT
  Age: 75 Year
  Sex: Male
  Weight: 132 kg

DRUGS (4)
  1. AMPICILLIN AND SULBACTAM [Suspect]
     Indication: CELLULITIS
     Dosage: 3 GM QID IV
     Route: 042
     Dates: start: 20110910, end: 20110913
  2. AMPICILLIN AND SULBACTAM [Suspect]
     Indication: ULCER
     Dosage: 3 GM QID IV
     Route: 042
     Dates: start: 20110910, end: 20110913
  3. AMOXICILLIN AND CLAVULANATE POTASSIUM [Suspect]
     Indication: ULCER
     Dosage: 1 TAB BID PO
     Route: 048
     Dates: start: 20110913, end: 20110920
  4. AMOXICILLIN AND CLAVULANATE POTASSIUM [Suspect]
     Indication: CELLULITIS
     Dosage: 1 TAB BID PO
     Route: 048
     Dates: start: 20110913, end: 20110920

REACTIONS (8)
  - CHEST PAIN [None]
  - DIARRHOEA [None]
  - PYREXIA [None]
  - FATIGUE [None]
  - ABDOMINAL PAIN [None]
  - RASH [None]
  - LEUKOCYTOCLASTIC VASCULITIS [None]
  - MALAISE [None]
